FAERS Safety Report 13564664 (Version 2)
Quarter: 2017Q2

REPORT INFORMATION
  Report Type: Spontaneous
  Country: CA (occurrence: US)
  Receive Date: 20170519
  Receipt Date: 20170608
  Transmission Date: 20170830
  Serious: No
  Sender: FDA-Public Use
  Company Number: CA-PFIZER INC-2017203215

PATIENT
  Sex: Female

DRUGS (1)
  1. LYRICA [Suspect]
     Active Substance: PREGABALIN
     Dosage: UNK
     Dates: start: 20170505

REACTIONS (7)
  - Urinary incontinence [Unknown]
  - Confusional state [Unknown]
  - Speech disorder [Unknown]
  - Hypersomnia [Unknown]
  - Pallor [Unknown]
  - Drug prescribing error [Unknown]
  - Disorientation [Unknown]

NARRATIVE: CASE EVENT DATE: 201705
